FAERS Safety Report 4326095-1 (Version None)
Quarter: 2004Q1

REPORT INFORMATION
  Report Type: 
  Country: None (occurrence: None)
  Receive Date: 20040324
  Receipt Date: 20040309
  Transmission Date: 20041129
  Serious: Yes (Hospitalization)
  Sender: FDA-Public Use
  Company Number: 230002M04NOR

PATIENT
  Sex: Male

DRUGS (1)
  1. REBIF [Suspect]
     Indication: MULTIPLE SCLEROSIS
     Dosage: 44 MCG, 1 IN 2 DAYS
     Dates: start: 20011201, end: 20040201

REACTIONS (4)
  - C-REACTIVE PROTEIN INCREASED [None]
  - ERYTHEMA [None]
  - OEDEMA [None]
  - PAIN [None]
